FAERS Safety Report 8294199-7 (Version None)
Quarter: 2012Q2

REPORT INFORMATION
  Report Type: 
  Country: None (occurrence: None)
  Receive Date: 20120413
  Receipt Date: 20120331
  Transmission Date: 20120825
  Serious: Yes (Other)
  Sender: FDA-Public Use
  Company Number: 2012AP000925

PATIENT
  Age: 27 Year
  Sex: Male

DRUGS (4)
  1. LORAZEPAM [Concomitant]
  2. RISPERIDONE [Concomitant]
  3. ZOLPIDEM TARTRATE [Suspect]
     Indication: INSOMNIA
     Dosage: 10 MG;1X
  4. PAROXETINE [Suspect]
     Indication: PRODUCT USED FOR UNKNOWN INDICATION
     Dosage: 30 MG

REACTIONS (8)
  - CONDITION AGGRAVATED [None]
  - VISION BLURRED [None]
  - HYPOKINESIA [None]
  - TACHYPHRENIA [None]
  - MUSCLE DISORDER [None]
  - FEELING DRUNK [None]
  - MANIA [None]
  - GRANDIOSITY [None]
